FAERS Safety Report 7098718-8 (Version None)
Quarter: 2010Q4

REPORT INFORMATION
  Report Type: 
  Country: None (occurrence: None)
  Receive Date: 20101110
  Receipt Date: 20101110
  Transmission Date: 20110411
  Serious: Yes (Other)
  Sender: FDA-Public Use
  Company Number: None

PATIENT
  Age: 48 Year
  Sex: Female
  Weight: 79.3795 kg

DRUGS (1)
  1. CLOBEX [Suspect]
     Indication: ALOPECIA AREATA
     Dosage: AS NEEDED 2X DAILY TOP
     Route: 061
     Dates: start: 20101011, end: 20101105

REACTIONS (5)
  - HYPOTENSION [None]
  - INAPPROPRIATE SCHEDULE OF DRUG ADMINISTRATION [None]
  - RASH [None]
  - RASH PUSTULAR [None]
  - SYNCOPE [None]
